FAERS Safety Report 8337577-X (Version None)
Quarter: 2012Q2

REPORT INFORMATION
  Report Type: 
  Country: None (occurrence: None)
  Receive Date: 20120504
  Receipt Date: 20110907
  Transmission Date: 20120825
  Serious: No
  Sender: FDA-Public Use
  Company Number: US-TEVA-2011004706

PATIENT
  Sex: Male
  Weight: 103.51 kg

DRUGS (6)
  1. NUVIGIL [Suspect]
     Indication: SLEEP APNOEA SYNDROME
     Dosage: 150 MILLIGRAM;
     Route: 048
     Dates: start: 20110223, end: 20110301
  2. VITAMIN D [Concomitant]
  3. STRESSTAB [Concomitant]
  4. PREVACID [Concomitant]
  5. DIOVAN [Concomitant]
  6. NUVIGIL [Suspect]
     Dosage: 150 MILLIGRAM;
     Route: 048
     Dates: start: 20110905

REACTIONS (2)
  - TACHYPHRENIA [None]
  - VIRAL TITRE INCREASED [None]
